FAERS Safety Report 23133435 (Version 3)
Quarter: 2024Q1

REPORT INFORMATION
  Report Type: Spontaneous
  Country: US (occurrence: US)
  Receive Date: 20231101
  Receipt Date: 20240221
  Transmission Date: 20240410
  Serious: No
  Sender: FDA-Public Use
  Company Number: US-BRISTOL-MYERS SQUIBB COMPANY-2023-154727

PATIENT
  Age: 75 Year
  Sex: Female

DRUGS (1)
  1. LENALIDOMIDE [Suspect]
     Active Substance: LENALIDOMIDE
     Indication: Drug therapy
     Dosage: FREQUENCY: TAKE 1 CAPSULE BY MOUTH DAILY ONLY ON MONDAY-FRIDAY.
     Route: 048
     Dates: start: 20230801

REACTIONS (3)
  - Hypertonic bladder [Not Recovered/Not Resolved]
  - Off label use [Unknown]
  - Diarrhoea [Recovered/Resolved]
